FAERS Safety Report 15690454 (Version 1)
Quarter: 2018Q4

REPORT INFORMATION
  Report Type: Spontaneous
  Country: US (occurrence: US)
  Receive Date: 20181205
  Receipt Date: 20181205
  Transmission Date: 20190205
  Serious: No
  Sender: FDA-Public Use
  Company Number: None

PATIENT
  Age: 66 Year
  Sex: Female
  Weight: 87.75 kg

DRUGS (2)
  1. EZETIMIBE 10 MG TABLETS (GENERIC FOR ZETIA 10 MG TABLET) [Suspect]
     Active Substance: EZETIMIBE
     Indication: BLOOD CHOLESTEROL INCREASED
     Dosage: ?          QUANTITY:1 TABLET(S);?
     Route: 048
     Dates: start: 20181108, end: 20181204
  2. LEVOTHYROXINE. [Concomitant]
     Active Substance: LEVOTHYROXINE

REACTIONS (6)
  - Pain [None]
  - Influenza like illness [None]
  - Fatigue [None]
  - Feeling abnormal [None]
  - Abdominal pain lower [None]
  - Muscle strain [None]

NARRATIVE: CASE EVENT DATE: 20181124
